FAERS Safety Report 8157570-X (Version None)
Quarter: 2012Q1

REPORT INFORMATION
  Report Type: 
  Country: None (occurrence: None)
  Receive Date: 20120222
  Receipt Date: 20120206
  Transmission Date: 20120608
  Serious: No
  Sender: FDA-Public Use
  Company Number: US-ASTRAZENECA-2012SE08264

PATIENT
  Age: 61 Year
  Sex: Female

DRUGS (2)
  1. ATENOLOL [Suspect]
     Route: 065
  2. TOPROL-XL [Suspect]
     Route: 048

REACTIONS (5)
  - PAIN [None]
  - ADVERSE DRUG REACTION [None]
  - VOMITING [None]
  - HYPOAESTHESIA [None]
  - MALAISE [None]
